FAERS Safety Report 9901887 (Version 1)
Quarter: 2014Q1

REPORT INFORMATION
  Report Type: Spontaneous
  Country: IT (occurrence: IT)
  Receive Date: 20140217
  Receipt Date: 20140217
  Transmission Date: 20141002
  Serious: Yes (Other)
  Sender: FDA-Public Use
  Company Number: IT-GLAXOSMITHKLINE-B0967478A

PATIENT
  Age: 64 Year
  Sex: Male

DRUGS (3)
  1. AUGMENTIN [Suspect]
     Indication: BRONCHITIS
     Dosage: 2G PER DAY
     Route: 048
     Dates: start: 20140101, end: 20140107
  2. FLUIMUCIL [Suspect]
     Indication: BRONCHITIS
     Dosage: 3ML PER DAY
     Route: 065
     Dates: start: 20140101, end: 20140107
  3. CLENIL [Suspect]
     Indication: BRONCHITIS
     Dosage: 2ML PER DAY
     Route: 065
     Dates: start: 20140101, end: 20140107

REACTIONS (1)
  - Urticaria [Recovered/Resolved]
